FAERS Safety Report 5988631-9 (Version None)
Quarter: 2008Q4

REPORT INFORMATION
  Report Type: 
  Country: None (occurrence: None)
  Receive Date: 20081208
  Receipt Date: 20081208
  Transmission Date: 20090506
  Serious: Yes (Other)
  Sender: FDA-Public Use
  Company Number: None

PATIENT
  Age: 15 Year
  Sex: Female
  Weight: 49.8957 kg

DRUGS (4)
  1. VENTOLIN HFA [Suspect]
     Indication: ASTHMA
     Dosage: 2 PUFFS AS NEEDED 4-6 HOURS OTHER
     Route: 050
     Dates: start: 20080601, end: 20080605
  2. VENTOLIN HFA [Suspect]
     Indication: NASOPHARYNGITIS
     Dosage: 2 PUFFS AS NEEDED 4-6 HOURS OTHER
     Route: 050
     Dates: start: 20080601, end: 20080605
  3. VENTOLIN HFA [Suspect]
     Indication: VIRAL INFECTION
     Dosage: 2 PUFFS AS NEEDED 4-6 HOURS OTHER
     Route: 050
     Dates: start: 20080601, end: 20080605
  4. WARRICK ALBUTEROL CFC INHALER [Concomitant]

REACTIONS (2)
  - COUGH [None]
  - PRODUCT QUALITY ISSUE [None]
